FAERS Safety Report 8491479-7 (Version None)
Quarter: 2012Q3

REPORT INFORMATION
  Report Type: 
  Country: None (occurrence: None)
  Receive Date: 20120706
  Receipt Date: 20120629
  Transmission Date: 20120928
  Serious: Yes (Other)
  Sender: FDA-Public Use
  Company Number: GB-PFIZER INC-2012156699

PATIENT
  Age: 69 Year
  Sex: Male
  Weight: 75 kg

DRUGS (11)
  1. ALBUTEROL SULATE [Concomitant]
     Dosage: UNK
  2. CISPLATIN [Suspect]
     Indication: NEURALGIA
     Dosage: 100 MG, 3X/DAY
     Route: 048
     Dates: start: 20120611, end: 20120618
  3. RAMIPRIL [Concomitant]
     Dosage: UNK
  4. ATORVASTATIN [Concomitant]
     Dosage: UNK
  5. PANTOPRAZOLE [Concomitant]
     Dosage: UNK
  6. GAVISCON [Concomitant]
     Dosage: UNK
  7. TAMSULOSIN HCL [Concomitant]
     Dosage: UNK
  8. DUTASTERIDE [Concomitant]
     Dosage: UNK
  9. ALLOPURINOL [Concomitant]
     Dosage: UNK
  10. BENDROFLUMETHIAZIDE [Concomitant]
     Dosage: UNK
  11. BECLOMETHASONE DIPROPIONATE [Concomitant]
     Dosage: UNK

REACTIONS (1)
  - VIOLENCE-RELATED SYMPTOM [None]
